FAERS Safety Report 25838386 (Version 1)
Quarter: 2025Q3

REPORT INFORMATION
  Report Type: Spontaneous
  Country: JP (occurrence: JP)
  Receive Date: 20250923
  Receipt Date: 20250923
  Transmission Date: 20251021
  Serious: Yes (Hospitalization)
  Sender: EISAI
  Company Number: JP-Eisai-202507591_DVG_P_1

PATIENT
  Age: 28 Year
  Sex: Female

DRUGS (2)
  1. LEMBOREXANT [Suspect]
     Active Substance: LEMBOREXANT
     Indication: Product used for unknown indication
     Route: 048
  2. FLUNITRAZEPAM [Suspect]
     Active Substance: FLUNITRAZEPAM
     Indication: Product used for unknown indication
     Route: 048

REACTIONS (2)
  - Altered state of consciousness [Recovering/Resolving]
  - Overdose [Recovering/Resolving]
